FAERS Safety Report 4677138-7 (Version None)
Quarter: 2005Q2

REPORT INFORMATION
  Report Type: 
  Country: None (occurrence: None)
  Receive Date: 20050525
  Receipt Date: 20050525
  Transmission Date: 20051028
  Serious: No
  Sender: FDA-Public Use
  Company Number: None

PATIENT
  Sex: Male
  Weight: 62.2 kg

DRUGS (2)
  1. FLUOROURACIL [Suspect]
     Indication: GASTRIC CANCER
     Dates: start: 20050321
  2. RADIATION THERAPY [Suspect]

REACTIONS (8)
  - DEHYDRATION [None]
  - DYSPHAGIA [None]
  - FATIGUE [None]
  - HAEMOGLOBIN INCREASED [None]
  - OESOPHAGEAL ULCER [None]
  - PALMAR-PLANTAR ERYTHRODYSAESTHESIA SYNDROME [None]
  - STOMATITIS [None]
  - WEIGHT DECREASED [None]
